FAERS Safety Report 7905220-7 (Version None)
Quarter: 2011Q4

REPORT INFORMATION
  Report Type: 
  Country: None (occurrence: None)
  Receive Date: 20111109
  Receipt Date: 20111031
  Transmission Date: 20120403
  Serious: Yes (Death, Hospitalization)
  Sender: FDA-Public Use
  Company Number: PHHO2011US17734

PATIENT
  Sex: Female
  Weight: 28.571 kg

DRUGS (6)
  1. ASPIRIN [Concomitant]
     Dosage: 81 MG, QD
  2. TESSALON [Concomitant]
     Dosage: 100 MG, TID
  3. TUSSIONEX [Concomitant]
     Dosage: 5 CC THREE TIMES DAILY PRN
  4. LETROZOLE [Suspect]
     Indication: ENDOMETRIAL CANCER
     Dosage: 2.5 MG, QD
     Route: 048
     Dates: start: 20110820, end: 20111012
  5. AFINITOR [Suspect]
     Indication: ENDOMETRIAL CANCER
     Dosage: 10 MG, QD
     Route: 048
     Dates: start: 20110820, end: 20111012
  6. ZOCOR [Concomitant]
     Dosage: 40 MG, QD

REACTIONS (2)
  - HAEMOGLOBIN DECREASED [None]
  - CONCOMITANT DISEASE PROGRESSION [None]
